FAERS Safety Report 5496318-4 (Version None)
Quarter: 2007Q4

REPORT INFORMATION
  Report Type: 
  Country: None (occurrence: None)
  Receive Date: 20071025
  Receipt Date: 20070326
  Transmission Date: 20080405
  Serious: No
  Sender: FDA-Public Use
  Company Number: A0644645A

PATIENT
  Age: 53 Year
  Sex: Female

DRUGS (8)
  1. ADVAIR DISKUS 100/50 [Suspect]
     Indication: CHRONIC OBSTRUCTIVE PULMONARY DISEASE
     Dosage: 1PUFF TWICE PER DAY
     Route: 055
     Dates: start: 20010101
  2. ANTIBIOTIC [Suspect]
     Indication: DRUG USE FOR UNKNOWN INDICATION
     Route: 065
  3. ALBUTEROL [Concomitant]
  4. SPIRIVA [Concomitant]
  5. CARBAMAZEPINE [Concomitant]
  6. FAMOTIDINE [Concomitant]
  7. IMODIUM [Concomitant]
  8. EXCEDRIN [Concomitant]

REACTIONS (1)
  - CANDIDIASIS [None]
